FAERS Safety Report 21139225 (Version 1)
Quarter: 2022Q3

REPORT INFORMATION
  Report Type: Spontaneous
  Country: US (occurrence: US)
  Receive Date: 20220727
  Receipt Date: 20220727
  Transmission Date: 20221026
  Serious: Yes (Other)
  Sender: FDA-Public Use
  Company Number: US-PFIZER INC-202201005896

PATIENT
  Age: 72 Year

DRUGS (1)
  1. PAXLOVID [Suspect]
     Active Substance: NIRMATRELVIR\RITONAVIR
     Indication: COVID-19 treatment
     Dosage: DAY 3 OF THE TABLETS

REACTIONS (5)
  - Productive cough [Unknown]
  - Lower respiratory tract infection [Unknown]
  - Fatigue [Unknown]
  - Dyspnoea [Unknown]
  - Dysphonia [Unknown]
